FAERS Safety Report 18059068 (Version 1)
Quarter: 2020Q3

REPORT INFORMATION
  Report Type: Spontaneous
  Country: US (occurrence: US)
  Receive Date: 20200722
  Receipt Date: 20200722
  Transmission Date: 20201103
  Serious: Yes (Other)
  Sender: FDA-Public Use
  Company Number: None

PATIENT
  Age: 44 Year
  Sex: Male
  Weight: 102.06 kg

DRUGS (5)
  1. BUPRENORPHINE AND NALOXONE SUBLINGUAL FILM 8 MG/2MG [Suspect]
     Active Substance: BUPRENORPHINE\NALOXONE
     Indication: DRUG USE DISORDER
     Dosage: ?          QUANTITY:2.5 FILMS;OTHER FREQUENCY:1 FILM/1.2 FILM/1 ;?
     Route: 060
     Dates: start: 20200623, end: 20200628
  2. ADDREAL XR [Concomitant]
  3. MTV [Concomitant]
  4. SUBOXONE [Concomitant]
     Active Substance: BUPRENORPHINE HYDROCHLORIDE\NALOXONE HYDROCHLORIDE
  5. MOTRIN [Concomitant]
     Active Substance: IBUPROFEN

REACTIONS (5)
  - Hyperhidrosis [None]
  - Drug withdrawal syndrome [None]
  - Headache [None]
  - Anxiety [None]
  - Pruritus [None]

NARRATIVE: CASE EVENT DATE: 20200629
